FAERS Safety Report 4417737-0 (Version None)
Quarter: 2004Q3

REPORT INFORMATION
  Report Type: 
  Country: None (occurrence: None)
  Receive Date: 20040803
  Receipt Date: 20040722
  Transmission Date: 20050211
  Serious: Yes (Hospitalization)
  Sender: FDA-Public Use
  Company Number: 2004042715

PATIENT
  Sex: Male

DRUGS (1)
  1. SULPERAZON (CEFOPERAZONEM SULBACTAM) [Suspect]
     Indication: PYELONEPHRITIS CHRONIC
     Dosage: 1 GRAM (1 D), INTRAVENOUS
     Route: 042
     Dates: start: 20040501, end: 20040621

REACTIONS (1)
  - ANAPHYLACTIC SHOCK [None]
